FAERS Safety Report 7870293-7 (Version None)
Quarter: 2011Q4

REPORT INFORMATION
  Report Type: 
  Country: None (occurrence: None)
  Receive Date: 20111028
  Receipt Date: 20110117
  Transmission Date: 20120403
  Serious: No
  Sender: FDA-Public Use
  Company Number: US-AMGEN-USASP2011002911

PATIENT
  Age: 45 Year
  Sex: Male

DRUGS (10)
  1. METHOTREXATE [Concomitant]
     Dosage: 20 MG, UNK
  2. CYMBALTA [Concomitant]
     Dosage: 30 MG, UNK
  3. MULTI-VITAMINS [Concomitant]
  4. OXYCODONE HCL [Concomitant]
     Dosage: 10 MG, UNK
  5. ADDERALL 5 [Concomitant]
     Dosage: 15 MG, UNK
  6. ASPIRIN [Concomitant]
     Dosage: 81 MG, UNK
  7. OXYCONTIN [Concomitant]
     Dosage: 15 MG, UNK
  8. PLAQUENIL [Concomitant]
     Dosage: 200 MG, UNK
  9. FISH OIL [Concomitant]
     Dosage: 300 MG, UNK
  10. ENBREL [Suspect]
     Indication: PRODUCT USED FOR UNKNOWN INDICATION
     Dosage: 25 MG, 2 TIMES/WK

REACTIONS (3)
  - INFLUENZA [None]
  - TESTICULAR PAIN [None]
  - MIGRAINE [None]
